FAERS Safety Report 11719567 (Version 1)
Quarter: 2015Q4

REPORT INFORMATION
  Report Type: Spontaneous
  Country: US (occurrence: None)
  Receive Date: 20151109
  Receipt Date: 20151109
  Transmission Date: 20160304
  Serious: No
  Sender: FDA-Public Use
  Company Number: None

PATIENT
  Age: 65 Year
  Sex: Female
  Weight: 78.47 kg

DRUGS (5)
  1. MINOCYCLINE [Suspect]
     Active Substance: MINOCYCLINE\MINOCYCLINE HYDROCHLORIDE
     Indication: ACNE
     Dosage: 2 PILLS
     Route: 048
     Dates: start: 20151030, end: 20151108
  2. MVI [Concomitant]
     Active Substance: VITAMINS
  3. PROBIOCTIC [Concomitant]
  4. MILK THISTLE [Concomitant]
     Active Substance: MILK THISTLE
  5. ASA EC 81 MG [Concomitant]

REACTIONS (2)
  - Abdominal pain upper [None]
  - Nausea [None]

NARRATIVE: CASE EVENT DATE: 20151108
